FAERS Safety Report 8080462-1 (Version None)
Quarter: 2012Q1

REPORT INFORMATION
  Report Type: 
  Country: None (occurrence: None)
  Receive Date: 20120130
  Receipt Date: 20120125
  Transmission Date: 20120608
  Serious: Yes (Hospitalization, Other)
  Sender: FDA-Public Use
  Company Number: IN-PFIZER INC-2011313593

PATIENT
  Age: 65 Year
  Sex: Female

DRUGS (1)
  1. SUTENT [Suspect]
     Indication: METASTATIC RENAL CELL CARCINOMA
     Dosage: 37.5 MG, 1X/DAY
     Route: 048
     Dates: start: 20110905, end: 20111208

REACTIONS (16)
  - SKIN DISCOLOURATION [None]
  - HAEMORRHAGE URINARY TRACT [None]
  - ABDOMINAL PAIN [None]
  - GASTRITIS [None]
  - DECREASED APPETITE [None]
  - DEPRESSED LEVEL OF CONSCIOUSNESS [None]
  - CONSTIPATION [None]
  - DIARRHOEA [None]
  - BLOOD POTASSIUM INCREASED [None]
  - SOMNOLENCE [None]
  - MOUTH ULCERATION [None]
  - DEHYDRATION [None]
  - VOMITING [None]
  - ULCER [None]
  - BLOOD SODIUM DECREASED [None]
  - BLISTER [None]
